FAERS Safety Report 23246495 (Version 1)
Quarter: 2023Q4

REPORT INFORMATION
  Report Type: Spontaneous
  Country: SG (occurrence: SG)
  Receive Date: 20231130
  Receipt Date: 20231130
  Transmission Date: 20240110
  Serious: Yes (Death)
  Sender: FDA-Public Use
  Company Number: SG-MYLANLABS-2023M1125306

PATIENT
  Age: 65 Year
  Sex: Male

DRUGS (6)
  1. TRASTUZUMAB [Suspect]
     Active Substance: TRASTUZUMAB
     Indication: Human epidermal growth factor receptor positive
     Dosage: UNK
     Route: 065
  2. TRASTUZUMAB [Suspect]
     Active Substance: TRASTUZUMAB
     Indication: Oesophageal cancer metastatic
  3. CAPECITABINE [Concomitant]
     Active Substance: CAPECITABINE
     Indication: Human epidermal growth factor receptor positive
     Dosage: UNK
     Route: 065
  4. CAPECITABINE [Concomitant]
     Active Substance: CAPECITABINE
     Indication: Oesophageal cancer metastatic
  5. CISPLATIN [Concomitant]
     Active Substance: CISPLATIN
     Indication: Human epidermal growth factor receptor positive
     Dosage: UNK
     Route: 065
  6. CISPLATIN [Concomitant]
     Active Substance: CISPLATIN
     Indication: Oesophageal cancer metastatic

REACTIONS (5)
  - Bicytopenia [Fatal]
  - Pyrexia [Fatal]
  - Viral infection [Fatal]
  - Oxygen saturation decreased [Fatal]
  - Lung infiltration [Fatal]

NARRATIVE: CASE EVENT DATE: 20200415
